FAERS Safety Report 18823047 (Version 3)
Quarter: 2021Q2

REPORT INFORMATION
  Report Type: Spontaneous
  Country: PK (occurrence: PK)
  Receive Date: 20210202
  Receipt Date: 20210527
  Transmission Date: 20210717
  Serious: Yes (Other)
  Sender: FDA-Public Use
  Company Number: PK-PFIZER INC-2019514562

PATIENT
  Age: 67 Year
  Weight: 68 kg

DRUGS (5)
  1. SUTENT [Suspect]
     Active Substance: SUNITINIB MALATE
     Indication: RENAL CELL CARCINOMA
     Dosage: 25 MG, CYCLIC, (12.5MG TWICE DAILY, 4 WEEKS ON 2 WEEKS OFF)
  2. SUTENT [Suspect]
     Active Substance: SUNITINIB MALATE
     Dosage: 12.5MG (2+1) ALTERNATE (1+1)
  3. PANADOL [Concomitant]
     Active Substance: ACETAMINOPHEN
     Dosage: 1, UNKNOWN UNIT
  4. SUTENT [Suspect]
     Active Substance: SUNITINIB MALATE
     Dosage: 37.5 MG, CYCLIC (4 WEEKS ON 2 WEEKS OFF)
  5. AVELOX [Concomitant]
     Active Substance: MOXIFLOXACIN HYDROCHLORIDE
     Dosage: 5 UNKNOWN UNIT

REACTIONS (8)
  - Red blood cell count decreased [Unknown]
  - Myocardial ischaemia [Unknown]
  - Neutrophil count decreased [Unknown]
  - Blood chloride decreased [Unknown]
  - Cough [Unknown]
  - Diabetes mellitus [Unknown]
  - Blood sodium decreased [Unknown]
  - Pyrexia [Unknown]

NARRATIVE: CASE EVENT DATE: 20191221
